FAERS Safety Report 9724731 (Version 1)
Quarter: 2013Q4

REPORT INFORMATION
  Report Type: Spontaneous
  Country: PT (occurrence: PT)
  Receive Date: 20131202
  Receipt Date: 20131202
  Transmission Date: 20140711
  Serious: Yes (Other)
  Sender: FDA-Public Use
  Company Number: PT-ASTRAZENECA-2013SE70799

PATIENT
  Age: 886 Month
  Sex: Male

DRUGS (1)
  1. BRILIQUE [Suspect]
     Route: 048
     Dates: start: 20130423

REACTIONS (2)
  - Abdominal pain upper [Recovered/Resolved]
  - Diarrhoea [Recovered/Resolved]
